FAERS Safety Report 10056778 (Version 1)
Quarter: 2014Q2

REPORT INFORMATION
  Report Type: Spontaneous
  Country: IT (occurrence: IT)
  Receive Date: 20140403
  Receipt Date: 20140403
  Transmission Date: 20141212
  Serious: Yes (Death, Hospitalization)
  Sender: FDA-Public Use
  Company Number: PHHY2014IT036468

PATIENT
  Age: 67 Year
  Sex: Female

DRUGS (4)
  1. TEMOZOLOMIDE [Suspect]
     Indication: GLIOBLASTOMA
     Dosage: 225 MG, QD
  2. SULFAMETHOXAZOLE+TRIMETHOPRIM [Suspect]
     Indication: ANTIFUNGAL PROPHYLAXIS
     Dosage: 800 MG, QD
  3. DEXAMETHASONE [Suspect]
     Dosage: 8 MG DAILY
  4. INSULIN [Concomitant]

REACTIONS (17)
  - Interstitial lung disease [Fatal]
  - Tachypnoea [Fatal]
  - Dyspnoea [Fatal]
  - Orthopnoea [Fatal]
  - Pyrexia [Fatal]
  - Hypoxia [Fatal]
  - Hypocapnia [Fatal]
  - Respiratory failure [Fatal]
  - Tachycardia [Unknown]
  - Hypotension [Unknown]
  - Bundle branch block right [Unknown]
  - Blood lactate dehydrogenase increased [Unknown]
  - Aspartate aminotransferase increased [Unknown]
  - Alanine aminotransferase increased [Unknown]
  - Oedema peripheral [Unknown]
  - Asthenia [Unknown]
  - Myopathy [Unknown]
